FAERS Safety Report 13653965 (Version 1)
Quarter: 2017Q2

REPORT INFORMATION
  Report Type: Spontaneous
  Country: US (occurrence: US)
  Receive Date: 20170614
  Receipt Date: 20170614
  Transmission Date: 20170830
  Serious: Yes (Other)
  Sender: FDA-Public Use
  Company Number: US-ALLERGAN-1724448US

PATIENT
  Sex: Male

DRUGS (1)
  1. ANDRODERM [Suspect]
     Active Substance: TESTOSTERONE
     Indication: ANDROGEN REPLACEMENT THERAPY
     Dosage: UNK
     Route: 065
     Dates: start: 2012, end: 201404

REACTIONS (11)
  - Cerebrovascular accident [Unknown]
  - Cerebellar stroke [Unknown]
  - Pulmonary oedema [Unknown]
  - Delirium [Unknown]
  - Renal failure [Unknown]
  - Dysarthria [Unknown]
  - Brain stem infarction [Unknown]
  - Basal ganglia stroke [Unknown]
  - Emotional distress [Unknown]
  - Confusional state [Unknown]
  - Pain [Unknown]

NARRATIVE: CASE EVENT DATE: 20140610
